FAERS Safety Report 15628471 (Version 4)
Quarter: 2024Q3

REPORT INFORMATION
  Report Type: Report from Study
  Country: IL (occurrence: IL)
  Receive Date: 20181116
  Receipt Date: 20240909
  Transmission Date: 20241017
  Serious: Yes (Other)
  Sender: TAKEDA
  Company Number: IL-SHIRE-IL201841351

PATIENT
  Age: 32 Year
  Sex: Female

DRUGS (2)
  1. VELAGLUCERASE ALFA [Suspect]
     Active Substance: VELAGLUCERASE ALFA
     Indication: Gaucher^s disease
     Dosage: 15 INTERNATIONAL UNIT/KILOGRAM, Q2WEEKS
     Route: 042
     Dates: start: 20091122, end: 20240114
  2. VELAGLUCERASE ALFA [Suspect]
     Active Substance: VELAGLUCERASE ALFA
     Dosage: 30 INTERNATIONAL UNIT/KILOGRAM, Q2WEEKS
     Route: 042
     Dates: start: 202402

REACTIONS (2)
  - Abortion spontaneous [Recovered/Resolved]
  - Exposure during pregnancy [Recovered/Resolved]

NARRATIVE: CASE EVENT DATE: 20181104
